FAERS Safety Report 4999953-2 (Version None)
Quarter: 2006Q2

REPORT INFORMATION
  Report Type: 
  Country: None (occurrence: None)
  Receive Date: 20060509
  Receipt Date: 20060424
  Transmission Date: 20061013
  Serious: Yes (Hospitalization)
  Sender: FDA-Public Use
  Company Number: FR200602005065

PATIENT
  Age: 67 Year
  Sex: Female
  Weight: 65.0005 kg

DRUGS (7)
  1. FORTEO [Suspect]
     Indication: OSTEOPOROSIS
     Dosage: 20 UG DAILY (1/D) SUBCUTANEOUS
     Route: 058
     Dates: start: 20060116
  2. FORTEO PEN (FORTEO PEN) [Concomitant]
  3. ART 50 (DIACEREIN) [Concomitant]
  4. CELECTOL [Concomitant]
  5. ACETAMINOPHEN W/ PROPOXYPHENE HCL [Concomitant]
  6. CACID D3 (CALCIUM CARBONATE, COLECALCIFEROL) [Concomitant]
  7. FOZIRETIC (FOSINOPRIL SODIUM, HYDROCHLOROTHIAZIDE) [Concomitant]

REACTIONS (1)
  - DEEP VEIN THROMBOSIS [None]
